FAERS Safety Report 8274057-4 (Version None)
Quarter: 2012Q2

REPORT INFORMATION
  Report Type: 
  Country: None (occurrence: None)
  Receive Date: 20120409
  Receipt Date: 20120327
  Transmission Date: 20120825
  Serious: Yes (Hospitalization, Other)
  Sender: FDA-Public Use
  Company Number: JPI-P-020248

PATIENT
  Age: 22 Year
  Sex: Female
  Weight: 52.1637 kg

DRUGS (6)
  1. AMITRIPTYLINE HCL [Concomitant]
  2. XYREM [Suspect]
     Indication: CATAPLEXY
     Dosage: 4.5 GM (2.25 GM,2 IN 1 D),ORAL
     Route: 048
     Dates: start: 20120305, end: 20120312
  3. LEVONORGESTREL [Concomitant]
  4. SERTRALINE HYDROCHLORIDE [Concomitant]
  5. MODAFINIL [Suspect]
     Indication: NARCOLEPSY
     Dosage: (150 MG,1 D) ; (250 MG,1 D)
     Dates: start: 20120311, end: 20120311
  6. MODAFINIL [Suspect]
     Indication: NARCOLEPSY
     Dosage: (150 MG,1 D) ; (250 MG,1 D)
     Dates: start: 20120201, end: 20120310

REACTIONS (5)
  - VOMITING [None]
  - SOMNOLENCE [None]
  - FEELING DRUNK [None]
  - ABDOMINAL PAIN [None]
  - RETCHING [None]
